FAERS Safety Report 5503314-7 (Version None)
Quarter: 2007Q4

REPORT INFORMATION
  Report Type: 
  Country: None (occurrence: None)
  Receive Date: 20071031
  Receipt Date: 20071024
  Transmission Date: 20080405
  Serious: Yes (Other)
  Sender: FDA-Public Use
  Company Number: GB-PFIZER INC-2007074927

PATIENT
  Sex: Female
  Weight: 120.7 kg

DRUGS (5)
  1. DIFLUCAN [Suspect]
     Indication: PROPHYLAXIS
     Route: 048
     Dates: start: 20070704, end: 20070709
  2. XELODA [Suspect]
     Indication: BREAST CANCER METASTATIC
  3. TAXOTERE [Suspect]
     Indication: BREAST CANCER METASTATIC
     Route: 042
  4. LASIX [Concomitant]
     Indication: HYPERTENSION
  5. NEUPOGEN [Concomitant]
     Indication: ARTHRITIS
     Route: 058

REACTIONS (18)
  - ABDOMINAL PAIN [None]
  - DIARRHOEA [None]
  - DROOLING [None]
  - FATIGUE [None]
  - FUNGAL INFECTION [None]
  - HYPOAESTHESIA [None]
  - HYPOTENSION [None]
  - LACRIMATION INCREASED [None]
  - NAUSEA [None]
  - ONYCHOLYSIS [None]
  - PALMAR-PLANTAR ERYTHRODYSAESTHESIA SYNDROME [None]
  - PYREXIA [None]
  - RHINITIS [None]
  - SKIN EXFOLIATION [None]
  - TONGUE COATED [None]
  - VOMITING [None]
  - VULVOVAGINAL MYCOTIC INFECTION [None]
  - WHITE BLOOD CELL COUNT DECREASED [None]
